FAERS Safety Report 9171264 (Version 1)
Quarter: 2013Q1

REPORT INFORMATION
  Report Type: Spontaneous
  Country: US (occurrence: US)
  Receive Date: 20130319
  Receipt Date: 20130319
  Transmission Date: 20140127
  Serious: Yes (Death, Other)
  Sender: FDA-Public Use
  Company Number: US-PFIZER INC-2013086205

PATIENT
  Age: 25 Year
  Sex: Male

DRUGS (1)
  1. VFEND [Suspect]
     Indication: HODGKIN^S DISEASE NODULAR SCLEROSIS
     Dosage: 200 MG, 2X/DAY
     Dates: start: 20121002

REACTIONS (1)
  - Pneumonia [Fatal]
